FAERS Safety Report 6244704-7 (Version None)
Quarter: 2009Q2

REPORT INFORMATION
  Report Type: 
  Country: None (occurrence: None)
  Receive Date: 20090625
  Receipt Date: 20090618
  Transmission Date: 20091009
  Serious: Yes (Hospitalization)
  Sender: FDA-Public Use
  Company Number: AT-BAYER-200920970GPV

PATIENT
  Age: 58 Year
  Sex: Male

DRUGS (13)
  1. CAMPATH [Suspect]
     Indication: IMMUNOSUPPRESSION
     Dosage: TOTAL DAILY DOSE: 30 MG
     Route: 041
     Dates: start: 20090423, end: 20090423
  2. PROGRAF [Concomitant]
  3. APREDNISOLON / PREDNISOLON [Concomitant]
  4. SELOKEN [Concomitant]
  5. MUCOBENE [Concomitant]
  6. PANTOPRAZOLE SODIUM [Concomitant]
  7. BAYPRESS [Concomitant]
  8. AMLODIPINE [Concomitant]
  9. EPIVIR [Concomitant]
  10. COTRIBENE [Concomitant]
  11. SUCRALAN [Concomitant]
  12. TAZONAM/PIPERACILLIN, TAZOBACTAM [Concomitant]
  13. LOVENOX [Concomitant]

REACTIONS (1)
  - RENAL FAILURE ACUTE [None]
